FAERS Safety Report 5858112-1 (Version None)
Quarter: 2008Q3

REPORT INFORMATION
  Report Type: 
  Country: None (occurrence: None)
  Receive Date: 20080822
  Receipt Date: 20080813
  Transmission Date: 20090109
  Serious: Yes (Hospitalization)
  Sender: FDA-Public Use
  Company Number: 08P-090-0455325-00

PATIENT
  Age: 3 Month
  Sex: Female

DRUGS (8)
  1. SYNAGIS [Suspect]
     Dosage: 70 MG/0.7ML (70MG/0.7ML)
     Dates: start: 20070227, end: 20070227
  2. HYDROCHLOROTHIAZIDE [Concomitant]
  3. SPIRONOLACTONE [Concomitant]
  4. URSODEOXYSHOLIC ACID [Concomitant]
  5. FERRUMATE SOLUTION [Concomitant]
  6. DOMPERIDONE [Concomitant]
  7. RANITDINE [Concomitant]
  8. AMINOPHYLLINE [Concomitant]

REACTIONS (1)
  - RESPIRATORY TRACT INFECTION [None]
